FAERS Safety Report 7669681-3 (Version None)
Quarter: 2011Q3

REPORT INFORMATION
  Report Type: 
  Country: None (occurrence: None)
  Receive Date: 20110808
  Receipt Date: 20110803
  Transmission Date: 20111222
  Serious: Yes (Hospitalization)
  Sender: FDA-Public Use
  Company Number: US-ABBOTT-11P-163-0843973-00

PATIENT
  Age: 22 Year
  Sex: Female

DRUGS (5)
  1. FLEXERIL [Concomitant]
     Indication: INFLAMMATORY BOWEL DISEASE
  2. WELCHOL [Concomitant]
     Indication: CHOLECYSTECTOMY
  3. HUMIRA [Suspect]
     Indication: CROHN'S DISEASE
  4. AMITRIPTYLINE HCL [Concomitant]
     Indication: DEPRESSION
     Dosage: 50MG DAILY
     Route: 048
     Dates: start: 20110101
  5. HUMIRA [Suspect]
     Indication: RHEUMATOID ARTHRITIS
     Dates: start: 20101001

REACTIONS (5)
  - OBSTRUCTED LABOUR [None]
  - STREPTOCOCCUS TEST POSITIVE [None]
  - PRE-ECLAMPSIA [None]
  - HYPERTENSION [None]
  - CHORIOAMNIONITIS [None]
